FAERS Safety Report 7574330-9 (Version None)
Quarter: 2011Q2

REPORT INFORMATION
  Report Type: 
  Country: None (occurrence: None)
  Receive Date: 20110627
  Receipt Date: 20110616
  Transmission Date: 20111010
  Serious: Yes (Hospitalization)
  Sender: FDA-Public Use
  Company Number: CH-MERCK-1106USA02371

PATIENT
  Age: 36 Year
  Sex: Female

DRUGS (19)
  1. ESCITALOPRAM [Suspect]
     Indication: DEPRESSION
     Dosage: OPTIMAL IMMUNOMODULATING DOSE
     Route: 048
     Dates: start: 20110308, end: 20110421
  2. PASPERTIN [Concomitant]
     Indication: VOMITING
     Route: 048
     Dates: start: 20110308, end: 20110411
  3. FAMVIR [Suspect]
     Route: 065
     Dates: start: 20110405, end: 20110412
  4. MEROPENEM [Suspect]
     Indication: PYREXIA
     Route: 065
     Dates: start: 20110407, end: 20110414
  5. ESCITALOPRAM [Suspect]
     Indication: BIPOLAR DISORDER
     Dosage: OPTIMAL IMMUNOMODULATING DOSE
     Route: 048
     Dates: start: 20110308, end: 20110421
  6. NEXIUM [Concomitant]
     Indication: NAUSEA
     Dosage: OPTIMAL IMMUNOMODULATING DOSE
     Route: 048
     Dates: start: 20110308
  7. CYTOSAR-U [Suspect]
     Indication: MYELODYSPLASTIC SYNDROME
     Route: 042
     Dates: start: 20110329, end: 20110403
  8. MOTILIUM [Concomitant]
     Indication: NAUSEA
     Route: 060
     Dates: start: 20110412, end: 20110421
  9. MOTILIUM [Concomitant]
     Indication: VOMITING
     Route: 060
     Dates: start: 20110412, end: 20110421
  10. PIPERACILLIN AND TAZOBACTAM [Concomitant]
     Indication: PYREXIA
     Route: 065
     Dates: start: 20110415, end: 20110426
  11. AMSIDYL [Suspect]
     Route: 065
     Dates: start: 20110331, end: 20110403
  12. IDARUBICIN HYDROCHLORIDE [Suspect]
     Indication: MYELODYSPLASTIC SYNDROME
     Dosage: OPTIMAL IMMUNOMODULATING DOSE
     Route: 042
     Dates: start: 20110310, end: 20110312
  13. PRIMOLUT-NOR [Concomitant]
     Route: 065
  14. CANCIDAS [Suspect]
     Indication: PYREXIA
     Dosage: OPTIMAL IMMUNOMODULATING DOSE
     Route: 065
     Dates: start: 20110407, end: 20110412
  15. PASPERTIN [Concomitant]
     Indication: NAUSEA
     Route: 048
     Dates: start: 20110308, end: 20110411
  16. NEXIUM [Concomitant]
     Indication: VOMITING
     Dosage: OPTIMAL IMMUNOMODULATING DOSE
     Route: 048
     Dates: start: 20110308
  17. SCOPOLAMINE [Concomitant]
     Dosage: OPTIMAL IMMUNOMODULATING DOSE
     Route: 065
     Dates: start: 20110308, end: 20110426
  18. ACETAMINOPHEN [Concomitant]
     Route: 042
     Dates: start: 20110308, end: 20110426
  19. ZOLPIDEM [Concomitant]
     Dosage: OPTIMAL IMMUNOMODULATING DOSE
     Route: 065
     Dates: start: 20110308, end: 20110426

REACTIONS (7)
  - CYTARABINE SYNDROME [None]
  - SEROTONIN SYNDROME [None]
  - RASH [None]
  - HEPATOCELLULAR INJURY [None]
  - RHABDOMYOLYSIS [None]
  - COAGULOPATHY [None]
  - MYALGIA [None]
